FAERS Safety Report 19107108 (Version 1)
Quarter: 2021Q2

REPORT INFORMATION
  Report Type: Spontaneous
  Country: US (occurrence: US)
  Receive Date: 20210407
  Receipt Date: 20210407
  Transmission Date: 20210717
  Serious: Yes (Other)
  Sender: FDA-Public Use
  Company Number: None

PATIENT
  Age: 69 Year
  Sex: Female
  Weight: 56.7 kg

DRUGS (1)
  1. REVLIMID [Suspect]
     Active Substance: LENALIDOMIDE
     Indication: PLASMA CELL MYELOMA
     Dosage: ?          OTHER FREQUENCY:QX21 DAYS OFF 7;?
     Route: 048
     Dates: start: 20200630, end: 20210203

REACTIONS (2)
  - Therapy interrupted [None]
  - Neutrophil count decreased [None]

NARRATIVE: CASE EVENT DATE: 20210202
